FAERS Safety Report 8835230 (Version 1)
Quarter: 2012Q4

REPORT INFORMATION
  Report Type: 
  Country: BR (occurrence: BR)
  Receive Date: 20121011
  Receipt Date: 20121011
  Transmission Date: 20130627
  Serious: Yes (Other)
  Sender: FDA-Public Use
  Company Number: BR-PFIZER INC-2012249001

PATIENT
  Age: 13 Year
  Sex: Male
  Weight: 34.5 kg

DRUGS (1)
  1. GENOTROPIN [Suspect]
     Dosage: UNK
     Dates: start: 201102

REACTIONS (1)
  - Convulsion [Unknown]
